FAERS Safety Report 10028656 (Version 1)
Quarter: 2014Q1

REPORT INFORMATION
  Report Type: Spontaneous
  Country: FR (occurrence: FR)
  Receive Date: 20140321
  Receipt Date: 20140321
  Transmission Date: 20141002
  Serious: Yes (Hospitalization)
  Sender: FDA-Public Use
  Company Number: FR-GLAXOSMITHKLINE-B0975785A

PATIENT
  Age: 24 Year
  Sex: Female

DRUGS (1)
  1. SERETIDE [Suspect]
     Indication: ASTHMA
     Dosage: 2000MCG PER DAY
     Route: 055
     Dates: start: 20131115, end: 20140210

REACTIONS (1)
  - Adrenal insufficiency [Unknown]
